FAERS Safety Report 9121056 (Version 4)
Quarter: 2013Q2

REPORT INFORMATION
  Report Type: Report from Study
  Country: CA (occurrence: CA)
  Receive Date: 20130226
  Receipt Date: 20130509
  Transmission Date: 20140414
  Serious: Yes (Other)
  Sender: FDA-Public Use
  Company Number: CA-ROCHE-1151338

PATIENT
  Age: 75 Year
  Sex: Female
  Weight: 59 kg

DRUGS (6)
  1. ACTEMRA [Suspect]
     Indication: RHEUMATOID ARTHRITIS
     Route: 042
     Dates: start: 20120404
  2. SULFASALAZINE [Concomitant]
  3. PLAQUENIL [Concomitant]
  4. CIPRALEX [Concomitant]
  5. ABILIFY [Concomitant]
  6. METHOTREXATE [Concomitant]

REACTIONS (3)
  - Depression [Not Recovered/Not Resolved]
  - Cystitis [Recovering/Resolving]
  - Bronchitis [Recovered/Resolved]
